FAERS Safety Report 8417464-9 (Version None)
Quarter: 2012Q2

REPORT INFORMATION
  Report Type: 
  Country: None (occurrence: None)
  Receive Date: 20120606
  Receipt Date: 20120531
  Transmission Date: 20120825
  Serious: Yes (Hospitalization)
  Sender: FDA-Public Use
  Company Number: PHHY2012US046579

PATIENT
  Age: 59 Year
  Sex: Female

DRUGS (7)
  1. FAMOTIDINE [Concomitant]
  2. FLUDROCORTISONE ACETATE [Concomitant]
  3. HEPARIN [Suspect]
  4. URSODIOL [Concomitant]
  5. HYDROCORTISONE [Concomitant]
  6. METOPROLOL TARTRATE [Concomitant]
  7. OXYCODONE HYDROCHLORIDE [Concomitant]

REACTIONS (2)
  - HEPARIN-INDUCED THROMBOCYTOPENIA [None]
  - HYPOKALAEMIA [None]
